FAERS Safety Report 7322894-2 (Version None)
Quarter: 2011Q1

REPORT INFORMATION
  Report Type: 
  Country: None (occurrence: None)
  Receive Date: 20110301
  Receipt Date: 20110218
  Transmission Date: 20110831
  Serious: No
  Sender: FDA-Public Use
  Company Number: US-ASTRAZENECA-2011SE09768

PATIENT
  Age: 438 Month
  Sex: Female

DRUGS (8)
  1. SEROQUEL [Suspect]
     Indication: BIPOLAR DISORDER
     Route: 048
     Dates: start: 20100601, end: 20110201
  2. CELEXA [Concomitant]
  3. SEROQUEL [Suspect]
     Route: 048
     Dates: start: 20110217
  4. SEROQUEL [Suspect]
     Route: 048
     Dates: start: 20110217
  5. HYZAAR [Concomitant]
     Dosage: 100-25 MG DAILY
  6. SEROQUEL [Suspect]
     Indication: POST-TRAUMATIC STRESS DISORDER
     Route: 048
     Dates: start: 20100601, end: 20110201
  7. VYVANSE [Concomitant]
     Indication: ATTENTION DEFICIT/HYPERACTIVITY DISORDER
  8. BACTRIM DS [Concomitant]
     Indication: LYMPHADENOPATHY
     Dates: start: 20101101

REACTIONS (5)
  - DRUG DOSE OMISSION [None]
  - LYMPHADENOPATHY [None]
  - WITHDRAWAL SYNDROME [None]
  - DEPRESSED MOOD [None]
  - SLEEP DISORDER [None]
